FAERS Safety Report 23103883 (Version 4)
Quarter: 2024Q1

REPORT INFORMATION
  Report Type: Spontaneous
  Country: FR (occurrence: FR)
  Receive Date: 20231025
  Receipt Date: 20240226
  Transmission Date: 20240410
  Serious: Yes (Hospitalization, Other)
  Sender: FDA-Public Use
  Company Number: FR-STRIDES ARCOLAB LIMITED-2023SP015895

PATIENT
  Age: 29 Year
  Sex: Female

DRUGS (7)
  1. CLARITHROMYCIN [Interacting]
     Active Substance: CLARITHROMYCIN
     Indication: Mycobacterial infection
     Dosage: 500 MILLIGRAM PER DAY
     Route: 065
     Dates: start: 202012
  2. ITRACONAZOLE [Interacting]
     Active Substance: ITRACONAZOLE
     Indication: Bronchopulmonary aspergillosis
     Dosage: 200 MILLIGRAM PER DAY
     Route: 065
     Dates: start: 202011, end: 2021
  3. ITRACONAZOLE [Interacting]
     Active Substance: ITRACONAZOLE
     Indication: Bronchopulmonary aspergillosis allergic
  4. ITRACONAZOLE [Interacting]
     Active Substance: ITRACONAZOLE
     Indication: Aspergillus infection
  5. FLUTICASONE PROPIONATE\SALMETEROL XINAFOATE [Interacting]
     Active Substance: FLUTICASONE PROPIONATE\SALMETEROL XINAFOATE
     Indication: Asthma
     Dosage: UNK, BID (FOR SEVERAL YEARS)
     Dates: start: 2021, end: 2021
  6. ETHAMBUTOL [Concomitant]
     Active Substance: ETHAMBUTOL HYDROCHLORIDE
     Indication: Mycobacterial infection
     Dosage: 500 MILLIGRAM PER DAY
     Route: 065
     Dates: start: 202012
  7. MOXIFLOXACIN [Concomitant]
     Active Substance: MOXIFLOXACIN
     Indication: Mycobacterial infection
     Dosage: 400 MILLIGRAM PER DAY
     Route: 065
     Dates: start: 202012

REACTIONS (7)
  - Cushing^s syndrome [Recovered/Resolved]
  - Secondary adrenocortical insufficiency [Recovered/Resolved]
  - Osteoporotic fracture [Recovered/Resolved]
  - Drug interaction [Unknown]
  - Adrenal insufficiency [Recovered/Resolved]
  - Osteoporosis [Recovered/Resolved]
  - Foot fracture [Recovered/Resolved]

NARRATIVE: CASE EVENT DATE: 20210401
